FAERS Safety Report 18414225 (Version 1)
Quarter: 2020Q4

REPORT INFORMATION
  Report Type: Spontaneous
  Country: US (occurrence: US)
  Receive Date: 20201022
  Receipt Date: 20201022
  Transmission Date: 20210114
  Serious: Yes (Other)
  Sender: FDA-Public Use
  Company Number: US-BTGSP-US-BTGSP-20-0155

PATIENT
  Age: 90 Year
  Sex: Male

DRUGS (1)
  1. DIGIFAB [Suspect]
     Active Substance: OVINE DIGOXIN IMMUNE FAB
     Indication: TOXICITY TO VARIOUS AGENTS
     Dosage: 440 MILLIGRAM
     Route: 065

REACTIONS (3)
  - Atrial fibrillation [Unknown]
  - Hyperkalaemia [Unknown]
  - Renal failure [Recovered/Resolved]
